FAERS Safety Report 7757542-0 (Version None)
Quarter: 2011Q3

REPORT INFORMATION
  Report Type: 
  Country: None (occurrence: None)
  Receive Date: 20110916
  Receipt Date: 20110909
  Transmission Date: 20111222
  Serious: Yes (Hospitalization)
  Sender: FDA-Public Use
  Company Number: JP-B.I. PHARMACEUTICALS,INC./RIDGEFIELD-2011-BP-20684NB

PATIENT
  Sex: Female
  Weight: 50.7 kg

DRUGS (13)
  1. MUCOSTA [Concomitant]
     Dosage: 100 MG
     Route: 048
  2. PRADAXA [Suspect]
     Indication: ATRIAL FIBRILLATION
  3. ALOSENN [Concomitant]
     Dosage: 1.5 G
     Route: 048
  4. BASEN OD [Concomitant]
     Dosage: 0.6 MG
     Route: 048
  5. ROHYPNOL [Concomitant]
     Dosage: 3DF
     Route: 048
  6. PRADAXA [Suspect]
     Indication: ANTICOAGULANT THERAPY
     Dosage: 220 MG
     Route: 048
     Dates: start: 20110630, end: 20110810
  7. PROPAFENONE HYDROCHLORIDE [Concomitant]
     Dosage: 300 MG
     Route: 048
  8. OLMESARTAN MEDOXOMIL [Concomitant]
     Dosage: 20 MG
     Route: 048
  9. VERAPAMIL HCL [Concomitant]
     Dosage: 120 MG
     Route: 048
  10. LANIRAPID [Concomitant]
     Dosage: 0.05 MG
     Route: 048
  11. ASPENON [Concomitant]
     Dosage: 40 MG
     Route: 048
  12. LASIX [Concomitant]
     Dosage: 10 MG
     Route: 048
  13. OMEPRAZOLE [Concomitant]
     Indication: EPIGASTRIC DISCOMFORT
     Dosage: 10 MG
     Route: 048
     Dates: start: 20101026, end: 20110810

REACTIONS (4)
  - OESOPHAGITIS [None]
  - ABDOMINAL PAIN UPPER [None]
  - DECREASED APPETITE [None]
  - OESOPHAGEAL ULCER HAEMORRHAGE [None]
